FAERS Safety Report 25979135 (Version 1)
Quarter: 2025Q4

REPORT INFORMATION
  Report Type: Spontaneous
  Country: US (occurrence: None)
  Receive Date: 20251029
  Receipt Date: 20251029
  Transmission Date: 20260118
  Serious: Yes (Disabling)
  Sender: FDA-CTU
  Company Number: None

PATIENT
  Age: 65 Year
  Sex: Female

DRUGS (2)
  1. IBRANCE [Suspect]
     Active Substance: PALBOCICLIB
     Dosage: 125MG  ONCE DAILY FOR 21 DAYS THEN 7 DAYS OFF  ORAL?
     Route: 048
  2. LETROZOLE [Suspect]
     Active Substance: LETROZOLE

REACTIONS (2)
  - Depression [None]
  - Arthralgia [None]
